FAERS Safety Report 16902769 (Version 2)
Quarter: 2019Q4

REPORT INFORMATION
  Report Type: Spontaneous
  Country: US (occurrence: US)
  Receive Date: 20191010
  Receipt Date: 20191010
  Transmission Date: 20200122
  Serious: Yes (Other)
  Sender: FDA-Public Use
  Company Number: US-MERZ PHARMACEUTICALS GMBH-19-04132

PATIENT
  Sex: Female

DRUGS (1)
  1. XEOMIN [Suspect]
     Active Substance: INCOBOTULINUMTOXINA
     Indication: PRODUCT USED FOR UNKNOWN INDICATION
     Route: 030

REACTIONS (7)
  - Chest discomfort [Unknown]
  - Salivary hypersecretion [Unknown]
  - Influenza like illness [Unknown]
  - Peripheral swelling [Unknown]
  - Incontinence [Unknown]
  - Dyspnoea [Unknown]
  - Insomnia [Unknown]
